FAERS Safety Report 10579825 (Version 1)
Quarter: 2014Q4

REPORT INFORMATION
  Report Type: Spontaneous
  Country: US (occurrence: US)
  Receive Date: 20141112
  Receipt Date: 20141112
  Transmission Date: 20150529
  Serious: No
  Sender: FDA-Public Use
  Company Number: US-ENDO PHARMACEUTICALS INC.-ALPR20140015

PATIENT
  Age: 35 Year
  Sex: Male

DRUGS (2)
  1. ALPRAZOLAM TABLETS 2 MG [Suspect]
     Active Substance: ALPRAZOLAM
     Indication: SELF-MEDICATION
     Dates: start: 20140206, end: 20140206
  2. ALPRAZOLAM TABLETS 2 MG [Suspect]
     Active Substance: ALPRAZOLAM
     Indication: OFF LABEL USE

REACTIONS (5)
  - Pain in extremity [Recovered/Resolved]
  - Self-medication [Recovered/Resolved]
  - Loss of consciousness [Recovered/Resolved]
  - Product use issue [Recovered/Resolved]
  - Somnolence [Recovered/Resolved]

NARRATIVE: CASE EVENT DATE: 20140206
